FAERS Safety Report 4727015-8 (Version None)
Quarter: 2005Q3

REPORT INFORMATION
  Report Type: 
  Country: None (occurrence: None)
  Receive Date: 20050726
  Receipt Date: 20050726
  Transmission Date: 20060218
  Serious: Yes (Life-Threatening)
  Sender: FDA-Public Use
  Company Number: None

PATIENT
  Sex: Male

DRUGS (1)
  1. DROTRECOGIN ALFA [Suspect]
     Indication: SEPSIS
     Dosage: 24 MCG/KG/MI X 93 HOURS INTRAVENOUS
     Route: 042
     Dates: start: 20050502, end: 20050506

REACTIONS (2)
  - GASTROINTESTINAL DISORDER [None]
  - MOUTH HAEMORRHAGE [None]
